FAERS Safety Report 19507786 (Version 1)
Quarter: 2021Q3

REPORT INFORMATION
  Report Type: Spontaneous
  Country: US (occurrence: US)
  Receive Date: 20210708
  Receipt Date: 20210708
  Transmission Date: 20211014
  Serious: Yes (Hospitalization, Other)
  Sender: FDA-Public Use
  Company Number: US-SA-2021SA223128

PATIENT
  Age: 13 Year
  Sex: Female

DRUGS (1)
  1. LUMIZYME [Suspect]
     Active Substance: ALGLUCOSIDASE ALFA
     Dosage: 1900 MG, QD
     Route: 042
     Dates: start: 2017

REACTIONS (2)
  - Staphylococcal infection [Unknown]
  - Central venous catheterisation [Unknown]
